FAERS Safety Report 4751696-6 (Version None)
Quarter: 2005Q3

REPORT INFORMATION
  Report Type: 
  Country: None (occurrence: None)
  Receive Date: 20050822
  Receipt Date: 20050811
  Transmission Date: 20060218
  Serious: Yes (Hospitalization)
  Sender: FDA-Public Use
  Company Number: UKP05000288

PATIENT
  Age: 92 Year
  Sex: Female
  Weight: 49 kg

DRUGS (3)
  1. ACTONEL [Suspect]
     Indication: OSTEOPOROSIS
     Dosage: 35 MG, 1 /WEEK, ORAL
     Route: 048
     Dates: start: 20050402, end: 20050729
  2. ADCAL-D3 (COLECALCIFEROL, CALCIUM CARBONATE) [Concomitant]
  3. PERINDOPRIL (PERINDOPRIL) [Concomitant]

REACTIONS (2)
  - GASTROINTESTINAL HAEMORRHAGE [None]
  - OESOPHAGITIS [None]
